FAERS Safety Report 4535727-4 (Version None)
Quarter: 2004Q4

REPORT INFORMATION
  Report Type: 
  Country: None (occurrence: None)
  Receive Date: 20041223
  Receipt Date: 20040113
  Transmission Date: 20050328
  Serious: No
  Sender: FDA-Public Use
  Company Number: US-GLAXOSMITHKLINE-A0492894A

PATIENT
  Age: 47 Year
  Sex: Female

DRUGS (6)
  1. FLONASE [Suspect]
     Dosage: 1 PER DAY
     Route: 045
     Dates: start: 20030101
  2. CLARITIN-D [Concomitant]
  3. GLUCOPHAGE [Concomitant]
  4. UNKNOWN MEDICATION [Concomitant]
  5. VASOTEC [Concomitant]
  6. BEXTRA [Concomitant]

REACTIONS (6)
  - EYE PRURITUS [None]
  - HEADACHE [None]
  - LACRIMATION INCREASED [None]
  - NASAL CONGESTION [None]
  - PHARMACEUTICAL PRODUCT COMPLAINT [None]
  - SNEEZING [None]
